FAERS Safety Report 17283822 (Version 1)
Quarter: 2020Q1

REPORT INFORMATION
  Report Type: Report from Study
  Country: JP (occurrence: JP)
  Receive Date: 20200117
  Receipt Date: 20200117
  Transmission Date: 20200409
  Serious: Yes (Hospitalization)
  Sender: FDA-Public Use
  Company Number: JP-ACTELION-A-CH2012-60640

PATIENT
  Age: 14 Year
  Sex: Male
  Weight: 32 kg

DRUGS (15)
  1. TRACLEER [Suspect]
     Active Substance: BOSENTAN
     Dosage: 31.25 MG, BID
     Route: 048
     Dates: start: 20090710, end: 20090723
  2. ENALAPRIL MALEATE. [Concomitant]
     Active Substance: ENALAPRIL MALEATE
  3. OXYGEN. [Concomitant]
     Active Substance: OXYGEN
  4. TRACLEER [Suspect]
     Active Substance: BOSENTAN
     Dosage: 46.88 MG, BID
     Route: 048
     Dates: start: 20090724, end: 20090806
  5. TRACLEER [Suspect]
     Active Substance: BOSENTAN
     Indication: PULMONARY ARTERIAL HYPERTENSION
     Dosage: 93.75 MG, BID
     Route: 048
     Dates: start: 20100610
  6. FUROSEMIDE. [Concomitant]
     Active Substance: FUROSEMIDE
  7. ASPIRIN. [Concomitant]
     Active Substance: ASPIRIN
  8. FEBURIC [Concomitant]
     Active Substance: FEBUXOSTAT
  9. BERAPROST SODIUM [Concomitant]
     Active Substance: BERAPROST SODIUM
  10. ADCIRCA [Concomitant]
     Active Substance: TADALAFIL
  11. SPIRONOLACTONE. [Concomitant]
     Active Substance: SPIRONOLACTONE
  12. XYZAL [Concomitant]
     Active Substance: LEVOCETIRIZINE DIHYDROCHLORIDE
  13. TRACLEER [Suspect]
     Active Substance: BOSENTAN
     Dosage: 15.63 MG, BID
     Route: 048
     Dates: start: 20090626, end: 20090709
  14. TRACLEER [Suspect]
     Active Substance: BOSENTAN
     Dosage: 62.5 MG, BID
     Route: 048
     Dates: start: 20090807, end: 20100609
  15. OPSUMIT [Suspect]
     Active Substance: MACITENTAN
     Indication: PULMONARY ARTERIAL HYPERTENSION
     Dosage: 10 MG, QD
     Route: 048
     Dates: start: 20170118

REACTIONS (3)
  - Pyrexia [Recovering/Resolving]
  - Viral upper respiratory tract infection [Recovering/Resolving]
  - Pneumonia [Recovered/Resolved]

NARRATIVE: CASE EVENT DATE: 20110526
